FAERS Safety Report 10171911 (Version 2)
Quarter: 2014Q2

REPORT INFORMATION
  Report Type: Spontaneous
  Country: BR (occurrence: BR)
  Receive Date: 20140515
  Receipt Date: 20140520
  Transmission Date: 20141212
  Serious: Yes (Other)
  Sender: FDA-Public Use
  Company Number: BR-PFIZER INC-2014128830

PATIENT
  Age: 80 Year
  Sex: Male

DRUGS (2)
  1. ALDACTONE [Suspect]
     Dosage: 25 MG, UNK
  2. LASIX [Concomitant]
     Dosage: 40 MG, UNK

REACTIONS (5)
  - Cardiac disorder [Unknown]
  - Cardiac disorder [Unknown]
  - Pollakiuria [Unknown]
  - Nocturia [Unknown]
  - Hypotension [Unknown]
